FAERS Safety Report 13543305 (Version 3)
Quarter: 2017Q3

REPORT INFORMATION
  Report Type: Report from Study
  Country: IT (occurrence: IT)
  Receive Date: 20170514
  Receipt Date: 20170727
  Transmission Date: 20171127
  Serious: Yes (Hospitalization)
  Sender: FDA-Public Use
  Company Number: PHHY2017IT068366

PATIENT
  Age: 61 Year
  Sex: Male
  Weight: 47.6 kg

DRUGS (4)
  1. SPIRONOLACTONE. [Concomitant]
     Active Substance: SPIRONOLACTONE
     Indication: PRODUCT USED FOR UNKNOWN INDICATION
     Dosage: 100 MG, UNK
     Route: 065
     Dates: start: 20160922, end: 20170502
  2. METFORMIN [Concomitant]
     Active Substance: METFORMIN HYDROCHLORIDE
     Indication: DIABETES MELLITUS
     Dosage: 100 MG, UNK
     Route: 065
     Dates: start: 20170307, end: 20170502
  3. SALICYLATE [Concomitant]
     Active Substance: SALICYLIC ACID
     Indication: PRODUCT USED FOR UNKNOWN INDICATION
     Dosage: UNK
     Route: 065
  4. SIGNIFOR [Suspect]
     Active Substance: PASIREOTIDE
     Indication: PITUITARY-DEPENDENT CUSHING^S SYNDROME
     Dosage: 1.2 MG, BID
     Route: 058
     Dates: start: 20160904, end: 20170505

REACTIONS (9)
  - Hyperglycaemia [Recovered/Resolved]
  - Polyuria [Unknown]
  - General physical health deterioration [Recovered/Resolved]
  - Blood creatinine increased [Unknown]
  - Cortisol increased [Unknown]
  - Fatigue [Unknown]
  - Hypokalaemia [Recovered/Resolved]
  - Confusional state [Unknown]
  - Weight decreased [Recovered/Resolved]

NARRATIVE: CASE EVENT DATE: 20170502
